FAERS Safety Report 11475667 (Version 1)
Quarter: 2015Q3

REPORT INFORMATION
  Report Type: Spontaneous
  Country: US (occurrence: US)
  Receive Date: 20150909
  Receipt Date: 20150909
  Transmission Date: 20151125
  Serious: No
  Sender: FDA-Public Use
  Company Number: US-TEVA-557070USA

PATIENT
  Sex: Female

DRUGS (1)
  1. FOLINIC ACID [Suspect]
     Active Substance: LEUCOVORIN
     Dosage: 350 MG/VIAL

REACTIONS (1)
  - Wrong technique in product usage process [Unknown]
